FAERS Safety Report 9601766 (Version 3)
Quarter: 2014Q1

REPORT INFORMATION
  Report Type: Spontaneous
  Country: US (occurrence: US)
  Receive Date: 20131007
  Receipt Date: 20140117
  Transmission Date: 20141002
  Serious: Yes (Death)
  Sender: FDA-Public Use
  Company Number: US-CELGENEUS-163-21880-13100439

PATIENT
  Sex: Male

DRUGS (4)
  1. REVLIMID [Suspect]
     Indication: HEPATOCELLULAR CARCINOMA
     Dosage: 25 MILLIGRAM
     Route: 048
     Dates: start: 20130721
  2. REVLIMID [Suspect]
     Dosage: 25 MILLIGRAM
     Route: 048
     Dates: start: 20130910, end: 20130928
  3. FENTANYL [Concomitant]
     Indication: PAIN
     Route: 048
     Dates: start: 2013, end: 2013
  4. ROXANOL [Concomitant]
     Indication: PAIN
     Dosage: 5-20MG
     Route: 048
     Dates: start: 201307, end: 201309

REACTIONS (1)
  - Hepatocellular carcinoma [Fatal]
